FAERS Safety Report 4389486-9 (Version None)
Quarter: 2004Q2

REPORT INFORMATION
  Report Type: 
  Country: None (occurrence: None)
  Receive Date: 20040628
  Receipt Date: 20040614
  Transmission Date: 20050107
  Serious: Yes (Hospitalization)
  Sender: FDA-Public Use
  Company Number: DK-JNJFOC-20040304590

PATIENT
  Age: 13 Year
  Sex: Male
  Weight: 64 kg

DRUGS (1)
  1. CONCERTA [Suspect]
     Indication: ATTENTION DEFICIT/HYPERACTIVITY DISORDER
     Dosage: 36 MG, IN 1 DAY, ORAL
     Route: 048
     Dates: start: 20031203, end: 20040209

REACTIONS (2)
  - BLOOD PRESSURE INCREASED [None]
  - HENOCH-SCHONLEIN PURPURA [None]
